FAERS Safety Report 12675166 (Version 3)
Quarter: 2016Q3

REPORT INFORMATION
  Report Type: Spontaneous
  Country: AU (occurrence: AU)
  Receive Date: 20160822
  Receipt Date: 20160907
  Transmission Date: 20161109
  Serious: Yes (Hospitalization, Disabling, Other)
  Sender: FDA-Public Use
  Company Number: AU-TAKEDA-2016TUS014595

PATIENT
  Age: 53 Year
  Sex: Male
  Weight: 120 kg

DRUGS (2)
  1. ORATANE                            /00279601/ [Suspect]
     Active Substance: TRETINOIN
     Indication: FOLLICULITIS
     Dosage: UNK
     Route: 065
  2. ENTYVIO [Suspect]
     Active Substance: VEDOLIZUMAB
     Indication: COLITIS ULCERATIVE
     Dosage: UNK
     Route: 065
     Dates: start: 20160428, end: 20160804

REACTIONS (9)
  - Lupus-like syndrome [Unknown]
  - Myositis [Not Recovered/Not Resolved]
  - Double stranded DNA antibody positive [Not Recovered/Not Resolved]
  - Arthralgia [Not Recovered/Not Resolved]
  - Myopathy [Unknown]
  - Histone antibody positive [Not Recovered/Not Resolved]
  - Polyuria [Unknown]
  - Antinuclear antibody positive [Not Recovered/Not Resolved]
  - Oedema [Unknown]

NARRATIVE: CASE EVENT DATE: 20160512
